FAERS Safety Report 7411240-1 (Version None)
Quarter: 2011Q2

REPORT INFORMATION
  Report Type: 
  Country: None (occurrence: None)
  Receive Date: 20110413
  Receipt Date: 20100426
  Transmission Date: 20111010
  Serious: Yes (Other)
  Sender: FDA-Public Use
  Company Number: US-BRISTOL-MYERS SQUIBB COMPANY-15070527

PATIENT
  Age: 71 Year
  Sex: Male
  Weight: 74 kg

DRUGS (3)
  1. DIPHENHYDRAMINE [Concomitant]
  2. ACETAMINOPHEN [Concomitant]
  3. ERBITUX [Suspect]
     Indication: LARYNGEAL CANCER
     Dosage: 400 MG/M2 LOADING DOSE THEN WEEKLY MAINTANANCE DOSE, ALSO RECEIVED 25CC/HR
     Route: 042
     Dates: start: 20100419

REACTIONS (1)
  - INFUSION RELATED REACTION [None]
